FAERS Safety Report 5176165-3 (Version None)
Quarter: 2006Q4

REPORT INFORMATION
  Report Type: 
  Country: None (occurrence: None)
  Receive Date: 20061215
  Receipt Date: 20060627
  Transmission Date: 20070319
  Serious: No
  Sender: FDA-Public Use
  Company Number: US-AMGEN-KDL184562

PATIENT
  Sex: Female

DRUGS (1)
  1. ENBREL [Suspect]
     Indication: PSORIASIS
     Dates: start: 20060215

REACTIONS (4)
  - CONDITION AGGRAVATED [None]
  - HYPERHIDROSIS [None]
  - PSORIASIS [None]
  - PYREXIA [None]
